FAERS Safety Report 11186791 (Version 1)
Quarter: 2015Q2

REPORT INFORMATION
  Report Type: Spontaneous
  Country: CN (occurrence: CN)
  Receive Date: 20150614
  Receipt Date: 20150614
  Transmission Date: 20150821
  Serious: Yes (Other)
  Sender: FDA-Public Use
  Company Number: CN-JNJFOC-20150602533

PATIENT
  Age: 10 Year
  Sex: Male

DRUGS (2)
  1. TYLENOL [Suspect]
     Active Substance: ACETAMINOPHEN
     Indication: PYREXIA
     Route: 048
     Dates: start: 20150531
  2. TYLENOL [Suspect]
     Active Substance: ACETAMINOPHEN
     Indication: PYREXIA
     Dosage: 10ML TEN TIMES, WITH THE TIME INTERVAL OF 4-6 HOURS.
     Route: 048
     Dates: start: 20150601

REACTIONS (2)
  - Scarlet fever [Unknown]
  - Rash [Unknown]

NARRATIVE: CASE EVENT DATE: 20150602
